FAERS Safety Report 15622047 (Version 1)
Quarter: 2018Q4

REPORT INFORMATION
  Report Type: Spontaneous
  Country: US (occurrence: US)
  Receive Date: 20181115
  Receipt Date: 20181115
  Transmission Date: 20190205
  Serious: No
  Sender: FDA-Public Use
  Company Number: US-PFIZER INC-2018461938

PATIENT
  Age: 8 Year
  Sex: Male

DRUGS (1)
  1. GENOTROPIN [Suspect]
     Active Substance: SOMATROPIN
     Dosage: 1.2 MG, DAILY
     Dates: start: 20101025

REACTIONS (11)
  - Vitamin D decreased [Unknown]
  - Blood chloride increased [Unknown]
  - Fatigue [Recovering/Resolving]
  - Blood follicle stimulating hormone decreased [Unknown]
  - Alanine aminotransferase decreased [Unknown]
  - Blood glucose increased [Unknown]
  - Blood bilirubin decreased [Unknown]
  - Blood testosterone increased [Unknown]
  - Blood thyroid stimulating hormone decreased [Unknown]
  - Blood creatinine decreased [Unknown]
  - Blood sodium increased [Unknown]

NARRATIVE: CASE EVENT DATE: 20150408
